FAERS Safety Report 24648488 (Version 1)
Quarter: 2024Q4

REPORT INFORMATION
  Report Type: Spontaneous
  Country: US (occurrence: None)
  Receive Date: 20241121
  Receipt Date: 20241121
  Transmission Date: 20250115
  Serious: Yes (Hospitalization, Other)
  Sender: Public
  Company Number: None

PATIENT
  Age: 31 Year
  Sex: Female
  Weight: 54 kg

DRUGS (1)
  1. EMGALITY [Suspect]
     Active Substance: GALCANEZUMAB-GNLM
     Dates: start: 20240709, end: 20240904

REACTIONS (15)
  - Headache [None]
  - Aura [None]
  - Depression [None]
  - Anxiety [None]
  - Abdominal distension [None]
  - Weight increased [None]
  - Drug ineffective [None]
  - Constipation [None]
  - Diarrhoea [None]
  - Fatigue [None]
  - Insomnia [None]
  - Abdominal pain upper [None]
  - Nausea [None]
  - Abdominal pain upper [None]
  - Visual impairment [None]

NARRATIVE: CASE EVENT DATE: 20240905
